FAERS Safety Report 9958259 (Version 2)
Quarter: 2014Q1

REPORT INFORMATION
  Report Type: Spontaneous
  Country: PR (occurrence: PR)
  Receive Date: 20140304
  Receipt Date: 20140304
  Transmission Date: 20141002
  Serious: No
  Sender: FDA-Public Use
  Company Number: PR-ABBVIE-13P-131-1070466-00

PATIENT
  Sex: Female
  Weight: 77.18 kg

DRUGS (18)
  1. HUMIRA [Suspect]
     Indication: RHEUMATOID ARTHRITIS
     Route: 058
     Dates: start: 2012
  2. PREDNISONE [Concomitant]
     Indication: INFLAMMATION
     Route: 048
  3. PLAQUENIL [Concomitant]
     Indication: RHEUMATOID ARTHRITIS
     Route: 048
  4. ZYRTEC [Concomitant]
     Indication: HYPERSENSITIVITY
     Route: 048
  5. CLARITIN [Concomitant]
     Indication: HYPERSENSITIVITY
     Route: 048
  6. ALLEGRA [Concomitant]
     Indication: HYPERSENSITIVITY
     Route: 048
  7. METHOTREXATE [Concomitant]
     Indication: RHEUMATOID ARTHRITIS
     Route: 048
  8. B12 [Concomitant]
     Indication: PRODUCT USED FOR UNKNOWN INDICATION
     Route: 030
  9. B12 [Concomitant]
     Indication: PRODUCT USED FOR UNKNOWN INDICATION
     Route: 048
  10. FOLIC ACID [Concomitant]
     Indication: RHEUMATOID ARTHRITIS
     Route: 048
  11. LYRICA [Concomitant]
     Indication: FIBROMYALGIA
     Route: 048
  12. ALTACE [Concomitant]
     Indication: HYPERTENSION
     Route: 048
  13. KETOCONAZOLE [Concomitant]
     Indication: HYPERSENSITIVITY
     Route: 061
  14. CYMBALTA [Concomitant]
     Indication: PAIN
     Route: 048
  15. PERCOCET [Concomitant]
     Indication: PAIN
     Route: 048
  16. DEMEROL [Concomitant]
     Indication: PAIN
     Route: 048
  17. DERMAGESIC [Concomitant]
     Indication: HYPERSENSITIVITY
     Route: 061
  18. PULMICORT [Concomitant]
     Indication: ASTHMA
     Route: 048

REACTIONS (1)
  - Nasopharyngitis [Unknown]
